FAERS Safety Report 9709130 (Version 2)
Quarter: 2013Q4

REPORT INFORMATION
  Report Type: Spontaneous
  Country: FR (occurrence: FR)
  Receive Date: 20131125
  Receipt Date: 20131206
  Transmission Date: 20140711
  Serious: Yes (Death, Life-Threatening, Other)
  Sender: FDA-Public Use
  Company Number: FR-PFIZER INC-2013332338

PATIENT
  Age: 75 Year
  Sex: Male

DRUGS (9)
  1. SOLU-MEDROL [Suspect]
     Dosage: 40 MG, DAILY
     Route: 042
     Dates: start: 20131026
  2. CIFLOX [Suspect]
     Indication: INTERSTITIAL LUNG DISEASE
     Dosage: 400 MG, 2X/DAY
     Route: 042
     Dates: start: 20131101, end: 20131106
  3. LASILIX [Suspect]
     Dosage: 40 MG, DAILY
     Route: 042
     Dates: start: 20131025, end: 20131106
  4. ASPEGIC [Suspect]
     Dosage: 100 MG, DAILY
     Route: 042
     Dates: start: 20131025
  5. ROVAMYCINE [Suspect]
     Indication: INTERSTITIAL LUNG DISEASE
     Dosage: 1.5 MIU, 3X/DAY
     Route: 042
     Dates: start: 20131025
  6. INEXIUM [Suspect]
     Indication: STRESS ULCER
     Dosage: 40 MG, DAILY
     Route: 042
     Dates: start: 20131025
  7. TIENAM [Suspect]
     Indication: INTERSTITIAL LUNG DISEASE
     Dosage: 500 MG, 4X/DAY
     Route: 042
     Dates: start: 20131030
  8. ROCEPHINE [Concomitant]
     Indication: INTERSTITIAL LUNG DISEASE
     Dosage: UNK
     Dates: start: 20131025
  9. FLAGYL [Concomitant]
     Indication: INTERSTITIAL LUNG DISEASE
     Dosage: UNK
     Dates: start: 20131025

REACTIONS (6)
  - Multi-organ failure [Fatal]
  - Cholestasis [Unknown]
  - Hemiparesis [Unknown]
  - Altered state of consciousness [Unknown]
  - Ischaemic stroke [Unknown]
  - Respiratory disorder [Unknown]
